FAERS Safety Report 9787872 (Version 1)
Quarter: 2013Q4

REPORT INFORMATION
  Report Type: Spontaneous
  Country: US (occurrence: US)
  Receive Date: 20131230
  Receipt Date: 20131230
  Transmission Date: 20140711
  Serious: No
  Sender: FDA-Public Use
  Company Number: US-BAYER-2013-158472

PATIENT
  Sex: Female
  Weight: 57.6 kg

DRUGS (1)
  1. MIRENA [Suspect]
     Dosage: 20 ?G/D, CONT
     Route: 015
     Dates: start: 20131031

REACTIONS (7)
  - Weight increased [Not Recovered/Not Resolved]
  - Weight fluctuation [None]
  - Abdominal distension [Not Recovered/Not Resolved]
  - Fluid retention [Not Recovered/Not Resolved]
  - Pollakiuria [Not Recovered/Not Resolved]
  - Menometrorrhagia [Recovered/Resolved]
  - Vaginal discharge [None]
